FAERS Safety Report 9636580 (Version 1)
Quarter: 2013Q4

REPORT INFORMATION
  Report Type: Spontaneous
  Country: SE (occurrence: SE)
  Receive Date: 20131021
  Receipt Date: 20131021
  Transmission Date: 20140711
  Serious: Yes (Hospitalization, Other)
  Sender: FDA-Public Use
  Company Number: SE-ACTAVIS-2013-18216

PATIENT
  Age: 9 Year
  Sex: Male

DRUGS (6)
  1. QUETIAPINE (UNKNOWN) [Suspect]
     Indication: BIPOLAR DISORDER
     Dosage: 800 MG, UNKNOWN
     Route: 065
  2. QUETIAPINE (UNKNOWN) [Suspect]
     Indication: ASPERGER^S DISORDER
     Dosage: 700 MG, UNKNOWN
     Route: 065
  3. QUETIAPINE (UNKNOWN) [Suspect]
     Indication: ATTENTION DEFICIT/HYPERACTIVITY DISORDER
  4. QUETIAPINE (UNKNOWN) [Suspect]
     Indication: OBSESSIVE-COMPULSIVE DISORDER
  5. QUETIAPINE (UNKNOWN) [Suspect]
     Indication: OPPOSITIONAL DEFIANT DISORDER
  6. RISPERIDONE [Concomitant]
     Indication: PRODUCT USED FOR UNKNOWN INDICATION
     Dosage: UNKNOWN
     Route: 065

REACTIONS (2)
  - Rhabdomyolysis [Recovered/Resolved]
  - Myositis [Recovered/Resolved]
